FAERS Safety Report 11638262 (Version 3)
Quarter: 2015Q4

REPORT INFORMATION
  Report Type: Report from Study
  Country: JP (occurrence: JP)
  Receive Date: 20151016
  Receipt Date: 20151106
  Transmission Date: 20160304
  Serious: Yes (Hospitalization)
  Sender: FDA-Public Use
  Company Number: JP-B.I. PHARMACEUTICALS,INC./RIDGEFIELD-2015-BI-55871BI

PATIENT
  Age: 69 Year
  Sex: Male
  Weight: 58.7 kg

DRUGS (6)
  1. CARBOCISTEINE [Concomitant]
     Active Substance: CARBOCYSTEINE
     Indication: CHRONIC OBSTRUCTIVE PULMONARY DISEASE
     Dosage: 100 MG
     Route: 048
     Dates: start: 20141211
  2. THEOPHYLLINE [Concomitant]
     Active Substance: THEOPHYLLINE ANHYDROUS
     Indication: CHRONIC OBSTRUCTIVE PULMONARY DISEASE
     Dosage: 400 MG
     Route: 048
     Dates: start: 20120810
  3. PRONON [Concomitant]
     Active Substance: PROPAFENONE
     Indication: BENIGN PROSTATIC HYPERPLASIA
     Dosage: 300 MG
     Route: 048
  4. BI 1744+TIOTROPIUM BROMIDE [Suspect]
     Active Substance: OLODATEROL\TIOTROPIUM BROMIDE
     Indication: CHRONIC OBSTRUCTIVE PULMONARY DISEASE
     Dosage: 2.5 MG
     Route: 055
     Dates: start: 20150831
  5. AMBROXOL HYDROCHLORIDE [Concomitant]
     Active Substance: AMBROXOL HYDROCHLORIDE
     Indication: CHRONIC OBSTRUCTIVE PULMONARY DISEASE
     Dosage: 45 MG
     Route: 048
     Dates: start: 20141211
  6. ZALUTIA [Concomitant]
     Active Substance: TADALAFIL
     Indication: VENTRICULAR EXTRASYSTOLES
     Dosage: 5 MG
     Route: 048
     Dates: end: 20151024

REACTIONS (1)
  - Chronic obstructive pulmonary disease [Recovered/Resolved]

NARRATIVE: CASE EVENT DATE: 20151006
